FAERS Safety Report 8338002-5 (Version None)
Quarter: 2012Q2

REPORT INFORMATION
  Report Type: 
  Country: None (occurrence: None)
  Receive Date: 20120504
  Receipt Date: 20120424
  Transmission Date: 20120825
  Serious: Yes (Other)
  Sender: FDA-Public Use
  Company Number: US-JNJFOC-20120411307

PATIENT
  Age: 87 Year
  Sex: Female

DRUGS (2)
  1. STELARA [Suspect]
     Indication: PSORIASIS
     Route: 058
  2. REMICADE [Suspect]
     Indication: PSORIASIS
     Route: 042

REACTIONS (1)
  - VAGINAL CANCER RECURRENT [None]
